FAERS Safety Report 5951301-7 (Version None)
Quarter: 2008Q4

REPORT INFORMATION
  Report Type: 
  Country: None (occurrence: None)
  Receive Date: 20081111
  Receipt Date: 20081111
  Transmission Date: 20090506
  Serious: Yes (Death, Hospitalization)
  Sender: FDA-Public Use
  Company Number: None

PATIENT
  Sex: Male
  Weight: 118 kg

DRUGS (2)
  1. TEMOZOLOMIDE [Suspect]
  2. DECADRON [Concomitant]

REACTIONS (7)
  - APHASIA [None]
  - BLOOD GLUCOSE DECREASED [None]
  - HYPOTENSION [None]
  - PERIPHERAL COLDNESS [None]
  - PNEUMONIA [None]
  - RESPIRATORY DISTRESS [None]
  - SEPSIS [None]
